FAERS Safety Report 13859505 (Version 1)
Quarter: 2017Q3

REPORT INFORMATION
  Report Type: Spontaneous
  Country: US (occurrence: US)
  Receive Date: 20170811
  Receipt Date: 20170811
  Transmission Date: 20171127
  Serious: Yes (Hospitalization)
  Sender: FDA-Public Use
  Company Number: None

PATIENT
  Age: 53 Year
  Sex: Female
  Weight: 90 kg

DRUGS (11)
  1. XARELTO [Suspect]
     Active Substance: RIVAROXABAN
     Indication: PULMONARY EMBOLISM
     Dosage: ?          QUANTITY:1 TABLET(S);?
     Route: 048
     Dates: start: 20170525
  2. BACLOFEN. [Concomitant]
     Active Substance: BACLOFEN
  3. XARELTO [Suspect]
     Active Substance: RIVAROXABAN
     Indication: DEEP VEIN THROMBOSIS
     Dosage: ?          QUANTITY:1 TABLET(S);?
     Route: 048
     Dates: start: 20170525
  4. ZOFRAN [Concomitant]
     Active Substance: ONDANSETRON HYDROCHLORIDE
  5. CLONIDINE. [Concomitant]
     Active Substance: CLONIDINE
  6. DILTIAZEM. [Concomitant]
     Active Substance: DILTIAZEM
  7. TOPIRAMATE. [Concomitant]
     Active Substance: TOPIRAMATE
  8. METHOTREXATE. [Concomitant]
     Active Substance: METHOTREXATE
  9. OMEPPRAZOLE [Concomitant]
  10. DULOETINE [Concomitant]
  11. LYRICA [Concomitant]
     Active Substance: PREGABALIN

REACTIONS (5)
  - Abdominal distension [None]
  - Loss of consciousness [None]
  - Haemangioma [None]
  - Dysarthria [None]
  - Abdominal pain [None]

NARRATIVE: CASE EVENT DATE: 20170808
